FAERS Safety Report 5091796-7 (Version None)
Quarter: 2006Q3

REPORT INFORMATION
  Report Type: 
  Country: None (occurrence: None)
  Receive Date: 20060829
  Receipt Date: 20060426
  Transmission Date: 20061208
  Serious: Yes (Other)
  Sender: FDA-Public Use
  Company Number: US-BRISTOL-MYERS SQUIBB COMPANY-13397849

PATIENT
  Age: 77 Year
  Sex: Male

DRUGS (2)
  1. ERBITUX [Suspect]
     Indication: RECTAL CANCER METASTATIC
     Dosage: 800 MG 08FEB06
     Route: 042
     Dates: start: 20060215, end: 20060215
  2. IRINOTECAN HCL [Concomitant]
     Dates: start: 20060208, end: 20060221

REACTIONS (1)
  - CONJUNCTIVITIS [None]
